FAERS Safety Report 7117319-6 (Version None)
Quarter: 2010Q4

REPORT INFORMATION
  Report Type: 
  Country: None (occurrence: None)
  Receive Date: 20101108
  Receipt Date: 20101028
  Transmission Date: 20110411
  Serious: Yes (Hospitalization)
  Sender: FDA-Public Use
  Company Number: 2010SP055966

PATIENT
  Age: 65 Year
  Sex: Female

DRUGS (7)
  1. MIRTAZAPINE [Suspect]
     Indication: SCHIZOAFFECTIVE DISORDER
     Dosage: 45 MG; QD; PO
     Route: 048
     Dates: start: 20101010, end: 20101016
  2. SOLIAN (AMISULPRIDE) [Suspect]
     Indication: SCHIZOAFFECTIVE DISORDER
     Dosage: 200 MG; QD; PO
     Route: 048
     Dates: start: 20101001, end: 20101016
  3. DELORAZEPAM (DELORAZEPAM) [Suspect]
     Indication: PRODUCT USED FOR UNKNOWN INDICATION
     Dosage: 60 GTT; ; PO
     Route: 048
  4. METFORMIN HCL [Concomitant]
  5. GLIBOMET [Concomitant]
  6. ZIMOX (AMOXICILLINE) [Concomitant]
  7. KCL RETARD [Concomitant]

REACTIONS (6)
  - BRADYKINESIA [None]
  - BRADYPHRENIA [None]
  - DRUG INTERACTION [None]
  - SALIVARY HYPERSECRETION [None]
  - SOPOR [None]
  - TORSADE DE POINTES [None]
